FAERS Safety Report 17352484 (Version 20)
Quarter: 2025Q3

REPORT INFORMATION
  Report Type: Report from Study
  Country: US (occurrence: US)
  Receive Date: 20200131
  Receipt Date: 20250801
  Transmission Date: 20251021
  Serious: Yes (Hospitalization, Other)
  Sender: TAKEDA
  Company Number: US-SHIRE-US202003678

PATIENT
  Age: 77 Year
  Sex: Male
  Weight: 103 kg

DRUGS (44)
  1. HUMAN IMMUNOGLOBULIN G [Suspect]
     Active Substance: HUMAN IMMUNOGLOBULIN G
     Indication: Hypergammaglobulinaemia
     Dosage: 12 GRAM, 1/WEEK
     Dates: start: 20191211
  2. HUMAN IMMUNOGLOBULIN G [Suspect]
     Active Substance: HUMAN IMMUNOGLOBULIN G
     Indication: Immunodeficiency common variable
     Dosage: 12 GRAM, 2/WEEK
  3. HUMAN IMMUNOGLOBULIN G [Suspect]
     Active Substance: HUMAN IMMUNOGLOBULIN G
     Indication: Immune system disorder
     Dosage: 12 GRAM, 1/WEEK
  4. ACETAMINOPHEN [Concomitant]
     Active Substance: ACETAMINOPHEN
  5. OMEPRAZOLE [Concomitant]
     Active Substance: OMEPRAZOLE
  6. MINERALS\VITAMINS [Concomitant]
     Active Substance: MINERALS\VITAMINS
  7. VITAMIN B12 [Concomitant]
     Active Substance: CYANOCOBALAMIN
  8. COLACE [Concomitant]
     Active Substance: DOCUSATE SODIUM
  9. FISH OIL [Concomitant]
     Active Substance: FISH OIL
  10. TESTOSTERONE CYPIONATE [Concomitant]
     Active Substance: TESTOSTERONE CYPIONATE
  11. PREDNISONE [Concomitant]
     Active Substance: PREDNISONE
  12. LEVOTHYROXINE SODIUM [Concomitant]
     Active Substance: LEVOTHYROXINE SODIUM
  13. HYDROXYCHLOROQUINE [Concomitant]
     Active Substance: HYDROXYCHLOROQUINE
  14. DICLOFENAC SODIUM [Concomitant]
     Active Substance: DICLOFENAC SODIUM
  15. SACCHAROMYCES CEREVISIAE [Concomitant]
     Active Substance: SACCHAROMYCES CEREVISIAE
  16. LINEZOLID [Concomitant]
     Active Substance: LINEZOLID
  17. CALCIUM [Concomitant]
     Active Substance: CALCIUM
  18. METFORMIN HYDROCHLORIDE [Concomitant]
     Active Substance: METFORMIN HYDROCHLORIDE
  19. SIMVASTATIN [Concomitant]
     Active Substance: SIMVASTATIN
  20. DIPHENHYDRAMINE HYDROCHLORIDE [Concomitant]
     Active Substance: DIPHENHYDRAMINE HYDROCHLORIDE
  21. Lmx [Concomitant]
  22. DILTIAZEM HYDROCHLORIDE [Concomitant]
     Active Substance: DILTIAZEM HYDROCHLORIDE
  23. DESMOPRESSIN ACETATE [Concomitant]
     Active Substance: DESMOPRESSIN ACETATE
  24. LOSARTAN POTASSIUM [Concomitant]
     Active Substance: LOSARTAN POTASSIUM
  25. VITAMIN B COMPLEX [Concomitant]
     Active Substance: CYANOCOBALAMIN\DEXPANTHENOL\NIACINAMIDE\PYRIDOXINE HYDROCHLORIDE\RIBOFLAVIN 5^-PHOSPHATE SODIUM\THIA
  26. MINERALS\VITAMINS [Concomitant]
     Active Substance: MINERALS\VITAMINS
  27. Covid-19 vaccine [Concomitant]
  28. DIPHENHYDRAMINE [Concomitant]
     Active Substance: DIPHENHYDRAMINE
  29. EPINEPHRINE [Concomitant]
     Active Substance: EPINEPHRINE
  30. METFORMIN [Concomitant]
     Active Substance: METFORMIN HYDROCHLORIDE
  31. DESMOPRESSIN [Concomitant]
     Active Substance: DESMOPRESSIN
  32. DULOXETINE [Concomitant]
     Active Substance: DULOXETINE
  33. LOSARTAN [Concomitant]
     Active Substance: LOSARTAN
  34. CARAFATE [Concomitant]
     Active Substance: SUCRALFATE
  35. AZELASTINE [Concomitant]
     Active Substance: AZELASTINE
  36. LORATADINE [Concomitant]
     Active Substance: LORATADINE
  37. PEPCID [Concomitant]
     Active Substance: FAMOTIDINE
  38. ADVIL [Concomitant]
     Active Substance: IBUPROFEN
  39. LEVOTHYROXINE [Concomitant]
     Active Substance: LEVOTHYROXINE
  40. HYDROXYCHLOROQUINE SULFATE [Concomitant]
     Active Substance: HYDROXYCHLOROQUINE SULFATE
  41. DULOXETINE HYDROCHLORIDE [Concomitant]
     Active Substance: DULOXETINE HYDROCHLORIDE
  42. ATORVASTATIN CALCIUM [Concomitant]
     Active Substance: ATORVASTATIN CALCIUM
  43. VITAMIN B [Concomitant]
     Active Substance: VITAMIN B
  44. FINASTERIDE [Concomitant]
     Active Substance: FINASTERIDE

REACTIONS (21)
  - Sepsis [Unknown]
  - Arthritis infective [Unknown]
  - Heart rate increased [Unknown]
  - Wrong technique in device usage process [Unknown]
  - Psoriasis [Unknown]
  - Urinary tract infection [Unknown]
  - Localised infection [Unknown]
  - Constipation [Unknown]
  - Infusion site rash [Unknown]
  - Infected bite [Unknown]
  - Nasopharyngitis [Unknown]
  - Herpes zoster [Unknown]
  - Cellulitis [Unknown]
  - Inappropriate schedule of product administration [Unknown]
  - Influenza [Unknown]
  - Dermatitis [Unknown]
  - Infusion site pruritus [Unknown]
  - Malaise [Unknown]
  - Pain [Unknown]
  - Infusion site pain [Unknown]
  - Pruritus [Unknown]

NARRATIVE: CASE EVENT DATE: 20220917
